FAERS Safety Report 11353776 (Version 1)
Quarter: 2015Q3

REPORT INFORMATION
  Report Type: Spontaneous
  Country: US (occurrence: US)
  Receive Date: 20150807
  Receipt Date: 20150807
  Transmission Date: 20151125
  Serious: No
  Sender: FDA-Public Use
  Company Number: US-JNJFOC-20141117362

PATIENT
  Sex: Female
  Weight: 56.7 kg

DRUGS (4)
  1. WOMENS ROGAINE EXTRA STRENGTH [Suspect]
     Active Substance: MINOXIDIL
     Indication: ALOPECIA
     Dosage: 1/2 A CAP, EVERY NIGHT
     Route: 061
     Dates: start: 20141118, end: 20141119
  2. FISH OIL [Concomitant]
     Active Substance: FISH OIL
     Indication: ROUTINE HEALTH MAINTENANCE
     Route: 065
  3. FISH OIL [Concomitant]
     Active Substance: FISH OIL
     Indication: CARDIAC DISORDER
     Route: 065
  4. OSTEO BI-FLEX [Concomitant]
     Active Substance: CHONDROITIN SULFATE A\GLUCOSAMINE
     Indication: ARTHROPATHY
     Dosage: A MONTH OR MORE
     Route: 065

REACTIONS (3)
  - Sunburn [Unknown]
  - Application site irritation [Unknown]
  - Rash [Unknown]
